FAERS Safety Report 5149049-4 (Version None)
Quarter: 2006Q4

REPORT INFORMATION
  Report Type: 
  Country: None (occurrence: None)
  Receive Date: 20061113
  Receipt Date: 20061103
  Transmission Date: 20070319
  Serious: Yes (Death)
  Sender: FDA-Public Use
  Company Number: US-JNJFOC-20061001351

PATIENT
  Sex: Female

DRUGS (4)
  1. DURAGESIC-100 [Suspect]
     Indication: DRUG USE FOR UNKNOWN INDICATION
  2. VICODIN [Interacting]
  3. VICODIN [Interacting]
     Indication: DRUG USE FOR UNKNOWN INDICATION
  4. PROZAC [Interacting]
     Indication: DRUG USE FOR UNKNOWN INDICATION

REACTIONS (3)
  - DRUG INTERACTION [None]
  - HYPOTENSION [None]
  - RESPIRATORY DEPRESSION [None]
